FAERS Safety Report 9555177 (Version 1)
Quarter: 2013Q3

REPORT INFORMATION
  Report Type: Spontaneous
  Country: US (occurrence: None)
  Receive Date: 20130913
  Receipt Date: 20130913
  Transmission Date: 20140515
  Serious: Yes (Other)
  Sender: FDA-Public Use
  Company Number: 1437913

PATIENT
  Age: 63 Year
  Sex: Male
  Weight: 79.55 kg

DRUGS (3)
  1. LEVOPHED [Suspect]
     Indication: BLOOD PRESSURE
     Route: 041
     Dates: start: 20120928, end: 20120928
  2. NOREPINEPHRINE [Concomitant]
  3. PROPOFOL [Concomitant]

REACTIONS (2)
  - Drug ineffective [None]
  - Product quality issue [None]
